FAERS Safety Report 8967135 (Version 1)
Quarter: 2012Q4

REPORT INFORMATION
  Report Type: 
  Country: US (occurrence: US)
  Receive Date: 20121217
  Receipt Date: 20121217
  Transmission Date: 20130627
  Serious: Yes (Death, Hospitalization, Other)
  Sender: FDA-Public Use
  Company Number: US-BAYER-2011-042498

PATIENT
  Age: 81 Year
  Sex: Male
  Weight: 74.84 kg

DRUGS (30)
  1. NEXAVAR [Suspect]
     Indication: METASTATIC RENAL CELL CARCINOMA
     Dosage: 200 mg, QD
     Route: 048
     Dates: start: 20110506
  2. NEXAVAR [Suspect]
     Indication: METASTATIC RENAL CELL CARCINOMA
     Dosage: 200 mg, BID
     Route: 048
  3. NEXAVAR [Suspect]
     Indication: METASTATIC RENAL CELL CARCINOMA
     Dosage: 200 mg, QD
     Route: 048
     Dates: end: 201204
  4. NEXAVAR [Suspect]
     Indication: METASTATIC RENAL CELL CARCINOMA
     Dosage: UNK
  5. ANTIGOUT PREPARATIONS [Concomitant]
     Indication: GOUT
     Dosage: UNK, PRN
  6. DERMATOLOGICALS [Concomitant]
  7. AMOXICILLIN [Concomitant]
     Route: 048
  8. ASPIRIN [Concomitant]
     Dosage: Daily dose 162 mg
     Route: 048
  9. BACITRACIN [Concomitant]
     Dosage: 500 unit/g top oint
     Route: 061
  10. CALCITRIOL [Concomitant]
     Dosage: Daily dose 12.5 mg
     Route: 048
  11. CETIRIZINE [Concomitant]
     Dosage: Daily dose 10 mg
     Route: 048
  12. CINACALCET HYDROCHLORIDE [Concomitant]
     Dosage: Daily dose 30 mg
     Route: 048
  13. PLAVIX [Concomitant]
     Dosage: 75 mg
     Route: 048
  14. DILTIAZEM CD [Concomitant]
     Dosage: Daily dose 180 mg
     Route: 048
  15. ERGOCALCIFEROL [Concomitant]
     Route: 048
  16. FINASTERIDE [Concomitant]
     Dosage: Daily dose 5 mg
  17. FUROSEMIDE [Concomitant]
     Dosage: Daily dose 40 mg
  18. GABAPENTIN [Concomitant]
     Dosage: 2 u, TID
  19. GABAPENTIN [Concomitant]
     Dosage: dose increased
  20. HYDROMORPHONE [Concomitant]
     Indication: PAIN
     Dosage: 0.5 tab every 6 hours
     Route: 048
  21. FERROUS SULFATE [Concomitant]
     Dosage: Daily dose 65 mg
     Route: 048
  22. LOPRESSOR [Concomitant]
     Dosage: Daily dose 25 mg
     Route: 048
  23. LOPRESSOR [Concomitant]
     Dosage: Daily dose 12.5 mg
  24. OXYCODONE/APAP [Concomitant]
     Indication: PAIN
     Dosage: 5-325 mg
     Route: 048
  25. RANITIDINE [Concomitant]
     Dosage: Daily dose 300 mg
     Route: 048
  26. ROSUVASTATIN [Concomitant]
     Dosage: Daily dose 5 mg
     Route: 048
  27. TAMSULOSIN HYDROCHLORIDE [Concomitant]
     Dosage: Daily dose .4 mg
     Route: 048
  28. WARFARIN [Concomitant]
     Dosage: Daily dose 2 mg
  29. WARFARIN [Concomitant]
     Dosage: Daily dose 4 mg
     Route: 048
  30. HYDROCODONE W/APAP [Concomitant]
     Indication: PAIN
     Dosage: UNK UNK, QID
     Route: 048

REACTIONS (31)
  - Death [Fatal]
  - Rash pruritic [Not Recovered/Not Resolved]
  - Dysphonia [Not Recovered/Not Resolved]
  - Dry throat [Not Recovered/Not Resolved]
  - Hair growth abnormal [Not Recovered/Not Resolved]
  - Dysphonia [Not Recovered/Not Resolved]
  - Pain in extremity [Not Recovered/Not Resolved]
  - Pain [Not Recovered/Not Resolved]
  - Fatigue [None]
  - Confusional state [None]
  - Memory impairment [None]
  - Dysgeusia [None]
  - International normalised ratio increased [None]
  - Contusion [None]
  - Palmar-plantar erythrodysaesthesia syndrome [None]
  - Erythema [None]
  - Peripheral arterial occlusive disease [None]
  - Pain in extremity [None]
  - Decreased appetite [None]
  - Gangrene [None]
  - Skin ulcer [None]
  - Skin ulcer [None]
  - Weight decreased [None]
  - Renal failure [None]
  - Blood creatinine increased [None]
  - Oedema [None]
  - Neuropathy peripheral [None]
  - Burning sensation [None]
  - Hypertension [None]
  - Arthritis [None]
  - Atrial fibrillation [None]
